FAERS Safety Report 4641918-4 (Version None)
Quarter: 2005Q2

REPORT INFORMATION
  Report Type: 
  Country: None (occurrence: None)
  Receive Date: 20050420
  Receipt Date: 20050404
  Transmission Date: 20051028
  Serious: Yes (Death, Life-Threatening)
  Sender: FDA-Public Use
  Company Number: USA050494753

PATIENT
  Age: 86 Year
  Sex: Female

DRUGS (4)
  1. ZYPREXA [Suspect]
     Dosage: 10 MG DAY
  2. LITHIUM [Concomitant]
  3. DEPAKOTE [Concomitant]
  4. VICODIN [Concomitant]

REACTIONS (3)
  - BREAST CANCER METASTATIC [None]
  - METASTASES TO KIDNEY [None]
  - RENAL CELL CARCINOMA STAGE UNSPECIFIED [None]
